FAERS Safety Report 9387858 (Version 2)
Quarter: 2014Q1

REPORT INFORMATION
  Report Type: Spontaneous
  Country: JP (occurrence: None)
  Receive Date: 20130703
  Receipt Date: 20140310
  Transmission Date: 20141002
  Serious: Yes (Hospitalization)
  Sender: FDA-Public Use
  Company Number: AE-SPE-2013-021

PATIENT
  Age: 7 Year
  Sex: Female

DRUGS (2)
  1. MEIACT MS [Suspect]
     Indication: INFECTION
     Route: 048
     Dates: start: 20110924, end: 20110926
  2. CEFTRIAXONE [Concomitant]

REACTIONS (2)
  - Clostridium difficile colitis [None]
  - Pseudomembranous colitis [None]
